FAERS Safety Report 4348024-7 (Version None)
Quarter: 2004Q2

REPORT INFORMATION
  Report Type: 
  Country: None (occurrence: None)
  Receive Date: 20040422
  Receipt Date: 20040407
  Transmission Date: 20050107
  Serious: Yes (Hospitalization)
  Sender: FDA-Public Use
  Company Number: D01200401202

PATIENT
  Sex: 0

DRUGS (3)
  1. FONDAPARINUX - SOLUTION - UNIT DOSE : UNKNOWN [Suspect]
     Indication: ANGINA UNSTABLE
     Dosage: 2.5 MG QD SUBCUTANEOUS
     Route: 058
  2. FONDAPARINUX - SOLUTION - UNIT DOSE : UNKNOWN [Suspect]
     Indication: MYOCARDIAL INFARCTION
     Dosage: 2.5 MG QD SUBCUTANEOUS
     Route: 058
  3. ASPIRIN [Concomitant]

REACTIONS (2)
  - CORONARY ARTERY THROMBOSIS [None]
  - DRUG INEFFECTIVE [None]
